FAERS Safety Report 25228854 (Version 1)
Quarter: 2025Q2

REPORT INFORMATION
  Report Type: Spontaneous
  Country: SG (occurrence: SG)
  Receive Date: 20250423
  Receipt Date: 20250423
  Transmission Date: 20250716
  Serious: Yes (Hospitalization, Other)
  Sender: RANBAXY
  Company Number: SG-SUN PHARMACEUTICAL INDUSTRIES LTD-2025R1-504752

PATIENT
  Age: 70 Year
  Sex: Female

DRUGS (1)
  1. METHOTREXATE [Suspect]
     Active Substance: METHOTREXATE
     Indication: Psoriasis
     Route: 065

REACTIONS (6)
  - Idiosyncratic drug reaction [Unknown]
  - Pancytopenia [Unknown]
  - Acute kidney injury [Unknown]
  - Mouth ulceration [Recovered/Resolved]
  - Ulcer [Recovered/Resolved]
  - Systemic toxicity [Unknown]
